FAERS Safety Report 26194809 (Version 1)
Quarter: 2025Q4

REPORT INFORMATION
  Report Type: Spontaneous
  Country: US (occurrence: US)
  Receive Date: 20251224
  Receipt Date: 20251224
  Transmission Date: 20260118
  Serious: Yes (Hospitalization, Other)
  Sender: ABBVIE
  Company Number: US-ABBVIE-6604030

PATIENT
  Age: 66 Year
  Sex: Female

DRUGS (2)
  1. LEXAPRO [Suspect]
     Active Substance: ESCITALOPRAM OXALATE
     Indication: Menopausal symptoms
     Route: 048
  2. LEXAPRO [Suspect]
     Active Substance: ESCITALOPRAM OXALATE
     Indication: Menopausal symptoms
     Route: 048

REACTIONS (18)
  - Fall [Unknown]
  - Near death experience [Unknown]
  - Confusional state [Unknown]
  - Off label use [Unknown]
  - Ventricular tachycardia [Unknown]
  - Electric shock sensation [Unknown]
  - Diarrhoea [Not Recovered/Not Resolved]
  - Influenza like illness [Unknown]
  - Insomnia [Unknown]
  - Nausea [Unknown]
  - Gait disturbance [Unknown]
  - Amnesia [Unknown]
  - Alcohol use disorder [Unknown]
  - Drug withdrawal syndrome [Unknown]
  - Gait disturbance [Unknown]
  - Nightmare [Unknown]
  - Drug withdrawal syndrome [Not Recovered/Not Resolved]
  - Drug ineffective [Unknown]

NARRATIVE: CASE EVENT DATE: 20230701
